FAERS Safety Report 9633735 (Version 1)
Quarter: 2013Q4

REPORT INFORMATION
  Report Type: Spontaneous
  Country: US (occurrence: US)
  Receive Date: 20131021
  Receipt Date: 20131021
  Transmission Date: 20140711
  Serious: No
  Sender: FDA-Public Use
  Company Number: US-PFIZER INC-2013296342

PATIENT
  Age: 44 Year
  Sex: Female
  Weight: 87.08 kg

DRUGS (2)
  1. ADVIL [Suspect]
     Indication: NECK PAIN
     Dosage: 200 MG, FOUR TIMES A DAY
  2. ADVIL [Suspect]
     Indication: HEADACHE

REACTIONS (2)
  - Hypersensitivity [Recovered/Resolved]
  - Rash [Recovered/Resolved]
